FAERS Safety Report 6582311-7 (Version None)
Quarter: 2010Q1

REPORT INFORMATION
  Report Type: 
  Country: None (occurrence: None)
  Receive Date: 20100212
  Receipt Date: 20100212
  Transmission Date: 20100710
  Serious: Yes (Life-Threatening, Hospitalization)
  Sender: FDA-Public Use
  Company Number: None

PATIENT
  Age: 56 Year
  Sex: Male
  Weight: 124.8 kg

DRUGS (1)
  1. VERAPAMIL [Suspect]
     Indication: HYPERTENSION
     Dosage: 360 MG EVERY DAY PO
     Route: 048
     Dates: start: 20040406, end: 20090925

REACTIONS (4)
  - ASTHENIA [None]
  - BRADYCARDIA [None]
  - CYANOSIS [None]
  - DIZZINESS [None]
